FAERS Safety Report 4794517-8 (Version None)
Quarter: 2005Q4

REPORT INFORMATION
  Report Type: 
  Country: None (occurrence: None)
  Receive Date: 20051011
  Receipt Date: 20051004
  Transmission Date: 20060501
  Serious: Yes (Hospitalization)
  Sender: FDA-Public Use
  Company Number: 2005UW14878

PATIENT
  Age: 80 Year
  Sex: Female

DRUGS (10)
  1. SEROQUEL [Suspect]
     Route: 048
  2. SEROQUEL [Suspect]
     Route: 048
  3. NOLVADEX [Concomitant]
     Route: 048
  4. ALDACTONE [Concomitant]
  5. COLACE [Concomitant]
  6. DULCOLAX [Concomitant]
  7. LEXAPRO [Concomitant]
  8. PREVACID [Concomitant]
  9. LIPITOR [Concomitant]
  10. BUMEX [Concomitant]

REACTIONS (6)
  - ANOREXIA [None]
  - DEHYDRATION [None]
  - DRUG TOXICITY [None]
  - HYPERNATRAEMIA [None]
  - MENTAL STATUS CHANGES [None]
  - PNEUMONIA [None]
